FAERS Safety Report 4899779-4 (Version None)
Quarter: 2006Q1

REPORT INFORMATION
  Report Type: 
  Country: None (occurrence: None)
  Receive Date: 20060118
  Receipt Date: 20050502
  Transmission Date: 20060701
  Serious: No
  Sender: FDA-Public Use
  Company Number: 2005000830

PATIENT
  Age: 46 Year
  Sex: Male

DRUGS (3)
  1. TARCEVA [Suspect]
     Indication: NON-SMALL CELL LUNG CANCER
     Dosage: 150 MG (QD), ORAL
     Route: 048
     Dates: start: 20050420, end: 20050430
  2. WELLBUTRIN [Concomitant]
  3. AMBIEN [Concomitant]

REACTIONS (7)
  - ANOREXIA [None]
  - BACK PAIN [None]
  - DIARRHOEA [None]
  - DRY SKIN [None]
  - MALAISE [None]
  - RASH [None]
  - WEIGHT DECREASED [None]
